FAERS Safety Report 5068758-9 (Version None)
Quarter: 2006Q3

REPORT INFORMATION
  Report Type: 
  Country: None (occurrence: None)
  Receive Date: 20060802
  Receipt Date: 20060317
  Transmission Date: 20061208
  Serious: No
  Sender: FDA-Public Use
  Company Number: US-BRISTOL-MYERS SQUIBB COMPANY-13319686

PATIENT
  Age: 87 Year
  Sex: Female
  Weight: 45 kg

DRUGS (3)
  1. COUMADIN [Suspect]
     Dosage: DURATION: 30 DAYS
     Dates: start: 20060201
  2. ASPIRIN [Concomitant]
     Dosage: WILL BE HELD FOR THREE DAYS FOR VITAMIN K TREATMENT
  3. PLAVIX [Concomitant]
     Dosage: WILL BE HELD FOR THREE DAYS FOR VITAMIN K TREATMENT

REACTIONS (2)
  - CONTUSION [None]
  - MEDICATION ERROR [None]
